FAERS Safety Report 17151055 (Version 1)
Quarter: 2019Q4

REPORT INFORMATION
  Report Type: Spontaneous
  Country: FR (occurrence: FR)
  Receive Date: 20191213
  Receipt Date: 20191213
  Transmission Date: 20200122
  Serious: Yes (Other)
  Sender: FDA-Public Use
  Company Number: FR-ZYDUS-044438

PATIENT
  Age: 49 Year
  Sex: Female

DRUGS (2)
  1. CHLORMADINONE [Suspect]
     Active Substance: CHLORMADINONE
     Indication: METRORRHAGIA
     Route: 048
     Dates: start: 2011, end: 201808
  2. TAMOXIFEN [Suspect]
     Active Substance: TAMOXIFEN
     Indication: BREAST CANCER
     Route: 048
     Dates: start: 201901

REACTIONS (1)
  - Meningioma [Not Recovered/Not Resolved]

NARRATIVE: CASE EVENT DATE: 20190325
